FAERS Safety Report 10474612 (Version 1)
Quarter: 2014Q3

REPORT INFORMATION
  Report Type: Spontaneous
  Country: ME (occurrence: ME)
  Receive Date: 20140925
  Receipt Date: 20140925
  Transmission Date: 20150326
  Serious: Yes (Death)
  Sender: FDA-Public Use
  Company Number: ME-ROCHE-1465675

PATIENT
  Age: 51 Year
  Sex: Male

DRUGS (1)
  1. ZELBORAF [Suspect]
     Active Substance: VEMURAFENIB
     Indication: METASTATIC MALIGNANT MELANOMA
     Route: 048

REACTIONS (6)
  - Skin depigmentation [Unknown]
  - Ischaemia [Unknown]
  - Melanosis [Unknown]
  - Death [Fatal]
  - Rash [Unknown]
  - Hair colour changes [Unknown]

NARRATIVE: CASE EVENT DATE: 201407
